FAERS Safety Report 11261257 (Version 2)
Quarter: 2015Q3

REPORT INFORMATION
  Report Type: Spontaneous
  Country: PT (occurrence: PT)
  Receive Date: 20150710
  Receipt Date: 20150716
  Transmission Date: 20151125
  Serious: Yes (Other)
  Sender: FDA-Public Use
  Company Number: PT-009507513-1507PRT004356

PATIENT
  Age: 89 Year
  Sex: Female

DRUGS (1)
  1. TIENAM IV [Suspect]
     Active Substance: CILASTATIN SODIUM\IMIPENEM
     Route: 042
     Dates: start: 20150618, end: 20150621

REACTIONS (2)
  - Adverse reaction [Recovered/Resolved]
  - Rash [Recovered/Resolved]

NARRATIVE: CASE EVENT DATE: 20150620
